FAERS Safety Report 5557966-6 (Version None)
Quarter: 2007Q4

REPORT INFORMATION
  Report Type: 
  Country: None (occurrence: None)
  Receive Date: 20071214
  Receipt Date: 20071205
  Transmission Date: 20080405
  Serious: Yes (Hospitalization)
  Sender: FDA-Public Use
  Company Number: PHBS2007JP16157

PATIENT
  Age: 60 Year
  Sex: Male

DRUGS (3)
  1. NEORAL [Suspect]
     Indication: APLASTIC ANAEMIA
     Route: 048
  2. NEORAL [Suspect]
     Dosage: 100 MG/D
     Route: 048
  3. PREDNISOLONE [Concomitant]
     Dosage: 30 MG/DAY
     Route: 048

REACTIONS (5)
  - BLOOD ALBUMIN DECREASED [None]
  - FOCAL GLOMERULOSCLEROSIS [None]
  - LOW DENSITY LIPOPROTEIN APHERESIS [None]
  - OEDEMA [None]
  - PROTEINURIA [None]
